FAERS Safety Report 19073368 (Version 2)
Quarter: 2021Q2

REPORT INFORMATION
  Report Type: Spontaneous
  Country: JP (occurrence: JP)
  Receive Date: 20210330
  Receipt Date: 20210427
  Transmission Date: 20210717
  Serious: Yes (Hospitalization, Other)
  Sender: FDA-Public Use
  Company Number: JP-PFIZER INC-2021297695

PATIENT
  Age: 85 Year
  Sex: Female
  Weight: 40 kg

DRUGS (14)
  1. E KEPPRA [Concomitant]
     Active Substance: LEVETIRACETAM
     Dosage: 500 MG, 2X/DAY
     Route: 041
     Dates: start: 20210214, end: 20210217
  2. PROPOFOL. [Concomitant]
     Active Substance: PROPOFOL
     Dosage: UNK
     Route: 041
     Dates: start: 20210213, end: 20210215
  3. HARTMANN?G3 [Concomitant]
     Dosage: 500 ML, 1X/DAY
     Route: 041
     Dates: start: 20210214, end: 20210325
  4. ANAEMETRO 500MG [Suspect]
     Active Substance: METRONIDAZOLE
     Indication: BRAIN ABSCESS
     Dosage: 500 MG, 3X/DAY
     Route: 041
     Dates: start: 20210215, end: 20210222
  5. GLYCERIN?FRUCTOSE [Concomitant]
     Active Substance: FRUCTOSE\GLYCERIN
     Dosage: 300 ML, 3X/DAY
     Route: 041
     Dates: start: 20210214, end: 20210222
  6. OMEPRAZOLE. [Concomitant]
     Active Substance: OMEPRAZOLE
     Dosage: 20 MG, 2X/DAY
     Route: 042
     Dates: start: 20210213, end: 20210217
  7. VANCOMYCIN HYDROCHLORIDE. [Concomitant]
     Active Substance: VANCOMYCIN HYDROCHLORIDE
     Dosage: 0.5 G, 2X/DAY
     Route: 041
     Dates: start: 20210214, end: 20210216
  8. DIAINA COMBINATION [Concomitant]
     Dosage: 1 DF, 1X/DAY
     Route: 041
     Dates: start: 20210214
  9. CEFTRIAXONE NA [Concomitant]
     Active Substance: CEFTRIAXONE
     Dosage: 2 G, 2X/DAY
     Route: 041
     Dates: start: 20210214, end: 20210222
  10. POTASSIUM ASPARTATE [Concomitant]
     Active Substance: POTASSIUM ASPARTATE
     Dosage: 10 MEQ, 2X/DAY
     Route: 041
     Dates: start: 20210215, end: 20210226
  11. ACMAIN D [Concomitant]
     Dosage: 500 ML, 1X/DAY
     Route: 041
     Dates: start: 20140214
  12. CARBAZOCHROME SODIUM SULFONATE TRIHYDRATE [Concomitant]
     Dosage: 1 DF, 1X/DAY
     Route: 041
     Dates: start: 20210215, end: 20210215
  13. TRANEXAMIC ACID. [Concomitant]
     Active Substance: TRANEXAMIC ACID
     Dosage: 1 DF, 1X/DAY
     Route: 041
     Dates: start: 20210215, end: 20210215
  14. NICARDIPINE [Concomitant]
     Active Substance: NICARDIPINE
     Dosage: UNK
     Route: 041
     Dates: start: 20210215, end: 20210216

REACTIONS (1)
  - Toxic encephalopathy [Recovering/Resolving]

NARRATIVE: CASE EVENT DATE: 20210218
